FAERS Safety Report 20996623 (Version 9)
Quarter: 2023Q2

REPORT INFORMATION
  Report Type: Spontaneous
  Country: CA (occurrence: CA)
  Receive Date: 20220623
  Receipt Date: 20230511
  Transmission Date: 20230722
  Serious: Yes (Other)
  Sender: FDA-Public Use
  Company Number: CA-CELLTRION INC.-2022CA007121

PATIENT

DRUGS (10)
  1. INFLECTRA [Suspect]
     Active Substance: INFLIXIMAB-DYYB
     Indication: Crohn^s disease
     Dosage: 500 MG, EVERY 8 WEEKS
     Route: 042
     Dates: start: 20220411, end: 20220606
  2. INFLECTRA [Suspect]
     Active Substance: INFLIXIMAB-DYYB
     Dosage: 500 MG, EVERY 8 WEEKS
     Route: 042
     Dates: start: 20220606
  3. INFLECTRA [Suspect]
     Active Substance: INFLIXIMAB-DYYB
     Dosage: 500 MG (SUPPOSED TO RECEIVE 8MG/KG, EVERY 6 WEEK)
     Route: 042
     Dates: start: 20220802
  4. INFLECTRA [Suspect]
     Active Substance: INFLIXIMAB-DYYB
     Dosage: 8 MG/KG EVERY 6 WEEKS
     Route: 042
     Dates: start: 20220913
  5. INFLECTRA [Suspect]
     Active Substance: INFLIXIMAB-DYYB
     Dosage: 8 MG/KG , EVERY 6 WEEKS
     Route: 042
     Dates: start: 20221025
  6. INFLECTRA [Suspect]
     Active Substance: INFLIXIMAB-DYYB
     Dosage: 8 MG/KG , EVERY 6 WEEKS
     Route: 042
     Dates: start: 20221201
  7. INFLECTRA [Suspect]
     Active Substance: INFLIXIMAB-DYYB
     Dosage: 8 MG/KG , EVERY 6 WEEKS
     Route: 042
  8. INFLECTRA [Suspect]
     Active Substance: INFLIXIMAB-DYYB
     Dosage: 8 MG/KG , EVERY 6 WEEKS
     Route: 042
     Dates: start: 20230112
  9. INFLECTRA [Suspect]
     Active Substance: INFLIXIMAB-DYYB
     Dosage: 8 MG/KG , EVERY 6 WEEKS
     Route: 042
     Dates: start: 20230220
  10. INFLECTRA [Suspect]
     Active Substance: INFLIXIMAB-DYYB
     Dosage: 8 MG/KG , EVERY 6 WEEKS
     Route: 042
     Dates: start: 20230403

REACTIONS (8)
  - Condition aggravated [Not Recovered/Not Resolved]
  - Intestinal anastomosis [Unknown]
  - Sinusitis [Unknown]
  - Back pain [Not Recovered/Not Resolved]
  - Off label use [Unknown]
  - Intentional product use issue [Unknown]
  - Off label use [Unknown]
  - Incorrect dose administered [Unknown]

NARRATIVE: CASE EVENT DATE: 20220609
